FAERS Safety Report 19208401 (Version 2)
Quarter: 2021Q2

REPORT INFORMATION
  Report Type: Spontaneous
  Country: DE (occurrence: DE)
  Receive Date: 20210503
  Receipt Date: 20210527
  Transmission Date: 20210717
  Serious: Yes (Hospitalization, Other)
  Sender: FDA-Public Use
  Company Number: DE-JNJFOC-20210445841

PATIENT
  Sex: Female

DRUGS (9)
  1. LAMICTAL [Concomitant]
     Active Substance: LAMOTRIGINE
  2. QUETIAPINE. [Concomitant]
     Active Substance: QUETIAPINE
  3. SPRAVATO [Suspect]
     Active Substance: ESKETAMINE
     Indication: PRODUCT USED FOR UNKNOWN INDICATION
  4. SPRAVATO [Suspect]
     Active Substance: ESKETAMINE
  5. SPRAVATO [Suspect]
     Active Substance: ESKETAMINE
  6. BRINTELLIX [Concomitant]
     Active Substance: VORTIOXETINE HYDROBROMIDE
  7. VORTIOXETINE. [Concomitant]
     Active Substance: VORTIOXETINE
  8. ELONTRIL [Concomitant]
     Active Substance: BUPROPION HYDROCHLORIDE
  9. TAVOR (LORAZEPAM) [Concomitant]
     Active Substance: LORAZEPAM

REACTIONS (3)
  - Listless [Recovering/Resolving]
  - Depressed mood [Recovering/Resolving]
  - Dissociation [Recovering/Resolving]
